FAERS Safety Report 5319020-8 (Version None)
Quarter: 2007Q2

REPORT INFORMATION
  Report Type: 
  Country: None (occurrence: None)
  Receive Date: 20070501
  Receipt Date: 20070312
  Transmission Date: 20071010
  Serious: Yes (Other)
  Sender: FDA-Public Use
  Company Number: A03200702582

PATIENT
  Sex: Female

DRUGS (3)
  1. AMBIEN [Suspect]
     Indication: INSOMNIA
     Dosage: 10 MG PRN - ORAL
     Route: 048
     Dates: start: 20030101, end: 20050101
  2. PAROXETINE HYDROCHLORIDE [Concomitant]
  3. SERTRALINE HYDROCHLORIDE [Concomitant]

REACTIONS (4)
  - AMNESIA [None]
  - HYPERTENSION [None]
  - INSULIN RESISTANCE [None]
  - WEIGHT INCREASED [None]
